FAERS Safety Report 8250413-5 (Version None)
Quarter: 2012Q2

REPORT INFORMATION
  Report Type: 
  Country: None (occurrence: None)
  Receive Date: 20120402
  Receipt Date: 20120328
  Transmission Date: 20120825
  Serious: Yes (Hospitalization, Other)
  Sender: FDA-Public Use
  Company Number: US-AMGEN-QUU426225

PATIENT
  Age: 66 Year
  Sex: Female

DRUGS (2)
  1. ENBREL [Suspect]
     Indication: RHEUMATOID ARTHRITIS
     Dosage: 50 MG, QWK
     Route: 058
     Dates: start: 20080307
  2. HUMIRA [Concomitant]

REACTIONS (7)
  - OSTEOARTHRITIS [None]
  - BREAKTHROUGH PAIN [None]
  - THERAPEUTIC RESPONSE DECREASED [None]
  - PARANASAL SINUS HYPERSECRETION [None]
  - RHEUMATOID ARTHRITIS [None]
  - PALPITATIONS [None]
  - OEDEMA PERIPHERAL [None]
